FAERS Safety Report 8028506-7 (Version None)
Quarter: 2012Q1

REPORT INFORMATION
  Report Type: 
  Country: None (occurrence: None)
  Receive Date: 20120106
  Receipt Date: 20111229
  Transmission Date: 20120608
  Serious: Yes (Other)
  Sender: FDA-Public Use
  Company Number: US-PERRIGO-11US011463

PATIENT
  Sex: Female

DRUGS (3)
  1. FAMOTIDINE [Suspect]
     Indication: DYSPEPSIA
     Dosage: 20 MG, QD
     Route: 048
     Dates: start: 20111219, end: 20111223
  2. ANALGESICS [Concomitant]
     Indication: ARTHRALGIA
     Dosage: UNK
     Route: 065
  3. FAMOTIDINE [Suspect]
     Dosage: 40 MG, SINGLE
     Route: 048
     Dates: start: 20111224, end: 20111224

REACTIONS (2)
  - NEPHROLITHIASIS [None]
  - PAIN [None]
